FAERS Safety Report 24646721 (Version 1)
Quarter: 2024Q4

REPORT INFORMATION
  Report Type: Report from Study
  Country: DE (occurrence: DE)
  Receive Date: 20241121
  Receipt Date: 20241121
  Transmission Date: 20250115
  Serious: Yes (Other)
  Sender: ROCHE
  Company Number: DE-ROCHE-10000134728

PATIENT

DRUGS (2)
  1. RITUXIMAB [Suspect]
     Active Substance: RITUXIMAB
     Indication: Thrombotic thrombocytopenic purpura
     Route: 065
  2. CAPLACIZUMAB [Suspect]
     Active Substance: CAPLACIZUMAB
     Indication: Thrombotic thrombocytopenic purpura
     Route: 065

REACTIONS (28)
  - Anaphylactic reaction [Unknown]
  - Cardiac arrest [Unknown]
  - Tachycardia [Unknown]
  - Vision blurred [Unknown]
  - Hepatic function abnormal [Unknown]
  - Bile duct stone [Unknown]
  - Gingival bleeding [Unknown]
  - Lower gastrointestinal haemorrhage [Unknown]
  - Chills [Unknown]
  - Urinary tract infection [Unknown]
  - Viral upper respiratory tract infection [Unknown]
  - Hyperglycaemia [Unknown]
  - Weight increased [Unknown]
  - Headache [Unknown]
  - Seizure [Unknown]
  - Cerebrovascular accident [Unknown]
  - Subdural haematoma [Unknown]
  - Delirium [Unknown]
  - Acute kidney injury [Unknown]
  - Vaginal haemorrhage [Unknown]
  - Epistaxis [Unknown]
  - Pneumonia [Unknown]
  - Pulmonary embolism [Unknown]
  - Ecchymosis [Unknown]
  - Rash [Unknown]
  - Pruritus [Unknown]
  - Hypotension [Unknown]
  - Supraventricular tachycardia [Unknown]
